FAERS Safety Report 23229149 (Version 3)
Quarter: 2025Q2

REPORT INFORMATION
  Report Type: Spontaneous
  Country: DE (occurrence: DE)
  Receive Date: 20231127
  Receipt Date: 20250419
  Transmission Date: 20250716
  Serious: Yes (Hospitalization, Other)
  Sender: AUROBINDO
  Company Number: DE-BRISTOL-MYERS SQUIBB COMPANY-2023-144926

PATIENT
  Age: 67 Year
  Sex: Male
  Weight: 84 kg

DRUGS (5)
  1. OXALIPLATIN [Suspect]
     Active Substance: OXALIPLATIN
     Indication: Oesophageal adenocarcinoma
     Dosage: 170 MILLIGRAM, EVERY WEEK
     Route: 042
     Dates: start: 20230519
  2. OPDIVO [Suspect]
     Active Substance: NIVOLUMAB
     Indication: Oesophageal adenocarcinoma
     Route: 042
     Dates: start: 20230526
  3. FLUOROURACIL [Suspect]
     Active Substance: FLUOROURACIL
     Indication: Oesophageal adenocarcinoma
     Dosage: 4000 MILLIGRAM, EVERY WEEK
     Route: 042
     Dates: start: 20230519
  4. RAMIPRIL [Concomitant]
     Active Substance: RAMIPRIL
     Indication: Product used for unknown indication
     Dosage: 10 MILLIGRAM, ONCE A DAY
     Route: 048
  5. TAMSULOSIN [Concomitant]
     Active Substance: TAMSULOSIN
     Indication: Product used for unknown indication
     Dosage: 0.4 MILLIGRAM, EVERY HOUR
     Route: 048

REACTIONS (2)
  - Oesophageal stenosis [Not Recovered/Not Resolved]
  - Immune-mediated hepatitis [Unknown]

NARRATIVE: CASE EVENT DATE: 20230919
